FAERS Safety Report 4821731-5 (Version None)
Quarter: 2005Q4

REPORT INFORMATION
  Report Type: 
  Country: None (occurrence: None)
  Receive Date: 20051107
  Receipt Date: 20051031
  Transmission Date: 20060501
  Serious: Yes (Life-Threatening, Other)
  Sender: FDA-Public Use
  Company Number: PHFR2005GB03569

PATIENT
  Age: 58 Year
  Sex: Female
  Weight: 43 kg

DRUGS (17)
  1. ELIDEL [Suspect]
     Indication: DERMATITIS
     Dosage: DAILY
     Route: 061
     Dates: start: 20050930, end: 20051005
  2. PROPRANOLOL [Concomitant]
     Dosage: 80 MG, TID
     Route: 065
  3. DIFFLAM [Concomitant]
     Dosage: UNK, TID
     Route: 061
  4. FORCEVAL [Concomitant]
     Dosage: 1 OT, QD
     Route: 065
  5. SENNA [Concomitant]
     Dosage: 7.5 MG, QID
     Route: 065
  6. WARFARIN [Concomitant]
     Dosage: 1-3 MG AS DIRECTED
     Route: 065
  7. CODEINE PHOSPHATE AND ACETAMINOPHEN [Concomitant]
     Dosage: 8/500 MG 1-4 TIMES A DAY
     Route: 065
  8. FLUTICASONE [Concomitant]
     Dosage: 1 SPRAY EACH SIDE/DAY
     Route: 045
  9. PROPANTHELINE [Concomitant]
     Dosage: 15 MG, 5QD
     Route: 065
  10. VENLAFAXINE HCL [Concomitant]
     Dosage: 75 MG, TID
     Route: 065
  11. TIBOLONE [Concomitant]
     Dosage: 2.5 MG, QD
     Route: 065
  12. BENDROFLUMETHIAZIDE [Concomitant]
     Dosage: 5 MG EVERY MORNING
     Route: 065
  13. NITRAZEPAM [Concomitant]
     Dosage: 5 MG, BID NOCTE
     Route: 065
  14. PROCYCLIDINE HYDROCHLORIDE 2MG TAB [Concomitant]
     Dosage: 5 MG, PRN
     Route: 065
  15. CHLORPROMAZINE [Concomitant]
     Dosage: 10 MG 1-2 PRN
     Route: 065
  16. KETOVITE [Concomitant]
     Dosage: 1 OT, TID
     Route: 065
  17. VISCOTEARS [Concomitant]
     Dosage: UNK, PRN
     Route: 047

REACTIONS (2)
  - ANAPHYLACTIC REACTION [None]
  - SWELLING FACE [None]
